FAERS Safety Report 8444211-7 (Version None)
Quarter: 2012Q2

REPORT INFORMATION
  Report Type: 
  Country: None (occurrence: None)
  Receive Date: 20120618
  Receipt Date: 20120608
  Transmission Date: 20120825
  Serious: Yes (Hospitalization)
  Sender: FDA-Public Use
  Company Number: FR-UCBSA-059364

PATIENT
  Age: 48 Year
  Sex: Female

DRUGS (6)
  1. STILNOX [Concomitant]
     Dosage: 10 MG
     Route: 048
     Dates: start: 20120210
  2. KEPPRA [Suspect]
     Route: 048
     Dates: start: 20120210
  3. ACETAMINOPHEN [Interacting]
     Route: 048
     Dates: start: 20120210
  4. MYCOSTER [Concomitant]
     Dosage: 1%
     Route: 003
     Dates: start: 20120210
  5. NEXIUM [Concomitant]
     Dosage: 20 MG DAILY
     Route: 048
     Dates: start: 20120210
  6. PROZAC [Interacting]
     Dosage: 20 MG
     Route: 048
     Dates: start: 20120210

REACTIONS (3)
  - STATUS EPILEPTICUS [None]
  - DRUG INTERACTION [None]
  - DRUG INEFFECTIVE [None]
